FAERS Safety Report 6787518-1 (Version None)
Quarter: 2010Q2

REPORT INFORMATION
  Report Type: 
  Country: None (occurrence: None)
  Receive Date: 20100623
  Receipt Date: 20090301
  Transmission Date: 20101027
  Serious: No
  Sender: FDA-Public Use
  Company Number: US-PFIZER INC-2006110636

PATIENT
  Sex: Female
  Weight: 79.4 kg

DRUGS (8)
  1. GENOTROPIN [Suspect]
     Dosage: 0.4 MG, 1X/DAY
     Route: 058
     Dates: start: 20050815
  2. METFORMIN HCL [Concomitant]
  3. LEVOXYL [Concomitant]
  4. LISINOPRIL [Concomitant]
     Indication: HYPERTENSION
  5. TRICOR [Concomitant]
     Indication: BLOOD CHOLESTEROL INCREASED
  6. XALATAN [Concomitant]
  7. CLIMARA [Concomitant]
  8. PROGESTERONE [Concomitant]

REACTIONS (1)
  - DRUG INEFFECTIVE [None]
